FAERS Safety Report 11176900 (Version 3)
Quarter: 2015Q2

REPORT INFORMATION
  Report Type: Report from Study
  Country: US (occurrence: US)
  Receive Date: 20150610
  Receipt Date: 20150625
  Transmission Date: 20150821
  Serious: Yes (Hospitalization, Other)
  Sender: FDA-Public Use
  Company Number: US-BIOGENIDEC-2015BI076585

PATIENT
  Age: 25 Year
  Sex: Female
  Weight: 44 kg

DRUGS (12)
  1. NEURONTIN [Concomitant]
     Active Substance: GABAPENTIN
  2. ALBUTEROL INHALER [Concomitant]
     Active Substance: ALBUTEROL
  3. LIDOCAINE. [Concomitant]
     Active Substance: LIDOCAINE
  4. TRILEPTAL [Concomitant]
     Active Substance: OXCARBAZEPINE
  5. KLONOPIN [Concomitant]
     Active Substance: CLONAZEPAM
  6. FENTANYL TRANSDERMAL SYSTEM [Concomitant]
     Active Substance: FENTANYL
  7. TECFIDERA [Suspect]
     Active Substance: DIMETHYL FUMARATE
     Indication: MULTIPLE SCLEROSIS
     Route: 048
     Dates: start: 2014
  8. SCOPOLAMINE [Concomitant]
     Active Substance: SCOPOLAMINE
  9. ROBAXIN [Concomitant]
     Active Substance: METHOCARBAMOL
  10. ZOFRAN [Concomitant]
     Active Substance: ONDANSETRON HYDROCHLORIDE
  11. NUCYNTA [Concomitant]
     Active Substance: TAPENTADOL HYDROCHLORIDE
  12. REMERON [Concomitant]
     Active Substance: MIRTAZAPINE

REACTIONS (23)
  - Decreased immune responsiveness [Unknown]
  - Anxiety [Unknown]
  - Scan abnormal [Unknown]
  - Multiple sclerosis relapse [Unknown]
  - Renal impairment [Unknown]
  - Malaise [Unknown]
  - Dysphonia [Unknown]
  - Vomiting [Unknown]
  - Balance disorder [Unknown]
  - Feeding disorder of infancy or early childhood [Unknown]
  - Pneumonia [Recovered/Resolved]
  - Neuropathy peripheral [Recovered/Resolved]
  - Cough [Unknown]
  - Weight decreased [Unknown]
  - Lung disorder [Not Recovered/Not Resolved]
  - Abasia [Recovered/Resolved]
  - Oral disorder [Unknown]
  - Hypophagia [Recovered/Resolved]
  - Aphasia [Recovered/Resolved]
  - Gastroenteritis viral [Unknown]
  - Optic neuritis [Not Recovered/Not Resolved]
  - Oral pain [Not Recovered/Not Resolved]
  - Peripheral swelling [Unknown]

NARRATIVE: CASE EVENT DATE: 20150104
